FAERS Safety Report 6983879-9 (Version None)
Quarter: 2010Q3

REPORT INFORMATION
  Report Type: 
  Country: None (occurrence: None)
  Receive Date: 20100914
  Receipt Date: 20090501
  Transmission Date: 20110219
  Serious: No
  Sender: FDA-Public Use
  Company Number: US-WYE-H08704109

PATIENT
  Age: 77 Year
  Sex: Female
  Weight: 63.11 kg

DRUGS (4)
  1. ADVIL PM [Suspect]
     Indication: INSOMNIA
     Dosage: 2 CAPLETS X 1
     Route: 048
     Dates: start: 20090323, end: 20090323
  2. LEVOTHYROXINE [Concomitant]
  3. CLONAZEPAM [Concomitant]
  4. LISINOPRIL AND HYDROCHLOROTHIAZIDE [Concomitant]

REACTIONS (3)
  - DRUG EFFECT DECREASED [None]
  - DRUG EFFECT PROLONGED [None]
  - SOMNOLENCE [None]
